FAERS Safety Report 17682895 (Version 2)
Quarter: 2020Q4

REPORT INFORMATION
  Report Type: Spontaneous
  Country: DE (occurrence: DE)
  Receive Date: 20200420
  Receipt Date: 20201104
  Transmission Date: 20210113
  Serious: Yes (Life-Threatening, Hospitalization, Other)
  Sender: FDA-Public Use
  Company Number: DE-SCIEGEN-2020SCILIT00099

PATIENT
  Age: 67 Year
  Sex: Male

DRUGS (5)
  1. METFORMIN HYDROCHLORIDETABLETS [Suspect]
     Active Substance: METFORMIN HYDROCHLORIDE
     Indication: PRODUCT USED FOR UNKNOWN INDICATION
     Route: 065
  2. CAFEDRINE/THEODRENALINE [Interacting]
     Active Substance: CAFEDRINE\THEODRENALINE
     Indication: HYPOTENSION
     Route: 065
  3. GLUCOSE [Interacting]
     Active Substance: DEXTROSE
     Indication: HYPOGLYCAEMIA
     Route: 065
  4. SODIUM BICARBONATE. [Interacting]
     Active Substance: SODIUM BICARBONATE
     Indication: METABOLIC ACIDOSIS
     Route: 065
  5. NOREPINEPHRINE [NORADRENALINE] [Interacting]
     Active Substance: NOREPINEPHRINE
     Indication: LACTIC ACIDOSIS
     Route: 065

REACTIONS (11)
  - Toxicity to various agents [Recovered/Resolved]
  - Disturbance in attention [Recovered/Resolved]
  - Restlessness [Recovered/Resolved]
  - Acute kidney injury [Recovered/Resolved]
  - Depressed level of consciousness [Recovered/Resolved]
  - Hypotonia [Recovered/Resolved]
  - Pain [Recovered/Resolved]
  - Hypoglycaemia [Recovered/Resolved]
  - Hypotension [Recovered/Resolved]
  - Lactic acidosis [Recovered/Resolved]
  - General physical health deterioration [Recovered/Resolved]
